FAERS Safety Report 5071638-6 (Version None)
Quarter: 2006Q3

REPORT INFORMATION
  Report Type: 
  Country: None (occurrence: None)
  Receive Date: 20060803
  Receipt Date: 20060803
  Transmission Date: 20061208
  Serious: Yes (Life-Threatening)
  Sender: FDA-Public Use
  Company Number: None

PATIENT
  Sex: Female
  Weight: 101.1521 kg

DRUGS (1)
  1. AVELOX [Suspect]
     Indication: URINARY TRACT INFECTION
     Dosage: 400MG
     Dates: start: 20060801, end: 20060801

REACTIONS (3)
  - ASTHENIA [None]
  - RESPIRATORY FAILURE [None]
  - SOMNOLENCE [None]
